FAERS Safety Report 10018802 (Version 2)
Quarter: 2014Q1

REPORT INFORMATION
  Report Type: Report from Study
  Country: US (occurrence: US)
  Receive Date: 20140318
  Receipt Date: 20140318
  Transmission Date: 20141002
  Serious: Yes (Congenital Anomaly)
  Sender: FDA-Public Use
  Company Number: US-ABBVIE-12P-163-0895508-00

PATIENT
  Sex: 0

DRUGS (2)
  1. HUMIRA [Suspect]
     Indication: MATERNAL EXPOSURE TIMING UNSPECIFIED
     Route: 064
  2. HUMIRA [Suspect]
     Route: 063

REACTIONS (4)
  - Congenital hand malformation [Unknown]
  - Foetal exposure during pregnancy [Unknown]
  - Vascular anomaly [Unknown]
  - Exposure during breast feeding [Not Recovered/Not Resolved]
